FAERS Safety Report 7033717-3 (Version None)
Quarter: 2010Q4

REPORT INFORMATION
  Report Type: 
  Country: None (occurrence: None)
  Receive Date: 20101007
  Receipt Date: 20101004
  Transmission Date: 20110411
  Serious: Yes (Other)
  Sender: FDA-Public Use
  Company Number: GR-WYE-G06768110

PATIENT
  Age: 70 Year
  Sex: Male

DRUGS (1)
  1. TEMSIROLIMUS [Suspect]
     Indication: RENAL CELL CARCINOMA
     Dosage: UNSPECIFIED
     Route: 042
     Dates: start: 20091201, end: 20100301

REACTIONS (1)
  - DISEASE PROGRESSION [None]
